FAERS Safety Report 7584673-0 (Version None)
Quarter: 2011Q2

REPORT INFORMATION
  Report Type: 
  Country: None (occurrence: None)
  Receive Date: 20110630
  Receipt Date: 20110622
  Transmission Date: 20111010
  Serious: Yes (Other)
  Sender: FDA-Public Use
  Company Number: JP-ROCHE-786354

PATIENT
  Age: 60 Year
  Sex: Female

DRUGS (6)
  1. LEUCOVORIN CALCIUM [Concomitant]
     Dosage: DOSE FORM: INJECTION
     Route: 041
  2. AVASTIN [Suspect]
     Indication: LARGE INTESTINE CARCINOMA
     Dosage: DOSE FORM: INJECTION
     Route: 041
  3. ANTIHYPERTENSIVE AGENTS [Concomitant]
     Dosage: UNCERTAINTY
  4. IRINOTECAN HCL [Concomitant]
     Route: 041
  5. FLUOROURACIL [Concomitant]
     Route: 040
  6. FLUOROURACIL [Concomitant]
     Route: 040

REACTIONS (6)
  - HYPOAESTHESIA [None]
  - NAUSEA [None]
  - NYSTAGMUS [None]
  - DYSKINESIA [None]
  - DEPRESSED LEVEL OF CONSCIOUSNESS [None]
  - ENCEPHALOPATHY [None]
